FAERS Safety Report 5666590-6 (Version None)
Quarter: 2008Q1

REPORT INFORMATION
  Report Type: 
  Country: None (occurrence: None)
  Receive Date: 20080315
  Receipt Date: 20071219
  Transmission Date: 20080703
  Serious: No
  Sender: FDA-Public Use
  Company Number: US-ABBOTT-07P-163-0431158-00

PATIENT
  Sex: Female
  Weight: 68.1 kg

DRUGS (3)
  1. HUMIRA [Suspect]
     Indication: PSORIASIS
     Route: 058
     Dates: start: 20070901
  2. HUMIRA [Suspect]
     Indication: PSORIATIC ARTHROPATHY
  3. NAPROXEN [Concomitant]
     Indication: PAIN
     Route: 048

REACTIONS (4)
  - ACCIDENTAL EXPOSURE [None]
  - ARTHRALGIA [None]
  - DRUG INEFFECTIVE [None]
  - PSORIASIS [None]
